FAERS Safety Report 9262352 (Version 1)
Quarter: 2013Q2

REPORT INFORMATION
  Report Type: Spontaneous
  Country: US (occurrence: None)
  Receive Date: 20130425
  Receipt Date: 20130425
  Transmission Date: 20140414
  Serious: No
  Sender: FDA-Public Use
  Company Number: None

PATIENT
  Age: 59 Year
  Sex: Male
  Weight: 73.94 kg

DRUGS (1)
  1. PREDNISONE [Suspect]
     Indication: CONTRAST MEDIA ALLERGY
     Dosage: 3 PILLS 6 HOURS APART
     Route: 048
     Dates: start: 20130422, end: 20130423

REACTIONS (1)
  - Tachycardia [None]
